FAERS Safety Report 8267392-7 (Version None)
Quarter: 2012Q2

REPORT INFORMATION
  Report Type: 
  Country: None (occurrence: None)
  Receive Date: 20120409
  Receipt Date: 20120329
  Transmission Date: 20120825
  Serious: Yes (Other)
  Sender: FDA-Public Use
  Company Number: PHHY2010GB06364

PATIENT
  Sex: Male

DRUGS (1)
  1. CLOZARIL [Suspect]
     Indication: SCHIZOPHRENIA
     Dates: start: 20070111

REACTIONS (10)
  - WHITE BLOOD CELL COUNT DECREASED [None]
  - NEUTROPHIL COUNT INCREASED [None]
  - COLON CANCER [None]
  - IRON DEFICIENCY ANAEMIA [None]
  - PLATELET COUNT INCREASED [None]
  - HAEMORRHAGE [None]
  - SICKLE CELL ANAEMIA [None]
  - HAEMOGLOBIN DECREASED [None]
  - GASTROINTESTINAL CARCINOMA [None]
  - WHITE BLOOD CELL COUNT INCREASED [None]
